FAERS Safety Report 8333078-3 (Version None)
Quarter: 2012Q2

REPORT INFORMATION
  Report Type: 
  Country: None (occurrence: None)
  Receive Date: 20120503
  Receipt Date: 20120427
  Transmission Date: 20120825
  Serious: Yes (Disabling, Other)
  Sender: FDA-Public Use
  Company Number: PHHO2011NZ019758

PATIENT
  Sex: Female

DRUGS (24)
  1. ETOPOSIDE [Suspect]
     Indication: ACUTE MYELOID LEUKAEMIA
     Dosage: UNK
     Dates: start: 20110809, end: 20111129
  2. ONDANSETRON [Concomitant]
     Dosage: 8 MG, UNK
     Dates: start: 20110811
  3. CODEINE [Concomitant]
     Dosage: 30-60 MG
     Dates: start: 20111007, end: 20111026
  4. VANCOMYCIN [Concomitant]
     Dosage: 125 MG, UNK
     Route: 048
     Dates: start: 20111013, end: 20111023
  5. BISACODYL [Concomitant]
     Dosage: UNK
  6. FLUCONAZOLE [Concomitant]
     Dosage: 200 MG, UNK
     Dates: start: 20111018
  7. DOCUSATE SODIUM [Concomitant]
     Dosage: PM
     Dates: start: 20110810
  8. CITALOPRAM [Concomitant]
     Dosage: 10 MG, QD
     Dates: start: 20111105
  9. CITALOPRAM [Concomitant]
     Dosage: 10 MG, UNK
     Dates: start: 20111005
  10. CYCLIZINE [Concomitant]
     Dosage: 25-60 MG
     Dates: start: 20111006, end: 20111026
  11. PHOSPHATE-SANDOZ [Concomitant]
     Dosage: UNK
     Dates: start: 20111014, end: 20111017
  12. METAMUCIL-2 [Concomitant]
     Dosage: UNK
  13. ZOPICLONE [Concomitant]
     Dosage: 75 MG, UNK
     Dates: start: 20111008, end: 20111026
  14. POSACONAZOLE [Concomitant]
     Dosage: 200 MG, UNK
     Dates: start: 20111011, end: 20111026
  15. NILSTAT [Concomitant]
     Dosage: 300 UG, UNK
     Dates: start: 20111013, end: 20111017
  16. PYRIMETHAMINE TAB [Concomitant]
     Dosage: 25 MG, QD
     Dates: start: 20111102
  17. CYTARABINE [Suspect]
     Indication: ACUTE MYELOID LEUKAEMIA
     Dosage: UNK
     Route: 048
     Dates: start: 20110809, end: 20111129
  18. ACYCLOVIR [Concomitant]
     Dosage: 400 MG, UNK
     Dates: start: 20110811
  19. SLOW-K [Concomitant]
     Dosage: UNK
     Dates: start: 20111016, end: 20111018
  20. EVEROLIMUS [Suspect]
     Indication: ACUTE MYELOID LEUKAEMIA
     Dosage: UNK
     Route: 048
     Dates: start: 20110809, end: 20111129
  21. DAUNORUBICIN HYDROCHLORIDE [Suspect]
     Indication: ACUTE MYELOID LEUKAEMIA
     Dosage: UNK
     Dates: start: 20110809, end: 20111129
  22. GRANULOCYTE COLONY STIMULATING FACTOR [Concomitant]
     Dosage: 300 UG, UNK
     Dates: start: 20111013, end: 20111017
  23. SULPHADIAZINE [Concomitant]
     Dosage: 1 G, TID
     Dates: start: 20111102
  24. SCOPOLAMINE [Concomitant]
     Dosage: 10 MG, UNK
     Dates: start: 20111008, end: 20111016

REACTIONS (3)
  - NEUTROPENIA [None]
  - EYE INFECTION TOXOPLASMAL [None]
  - UVEITIS [None]
